FAERS Safety Report 7623101-3 (Version None)
Quarter: 2011Q3

REPORT INFORMATION
  Report Type: 
  Country: None (occurrence: None)
  Receive Date: 20110720
  Receipt Date: 20110707
  Transmission Date: 20111222
  Serious: Yes (Death, Congenital Anomaly)
  Sender: FDA-Public Use
  Company Number: FR-JNJFOC-2005082253

PATIENT

DRUGS (8)
  1. CEFPODOXIME PROXETIL [Suspect]
     Indication: ILL-DEFINED DISORDER
     Dosage: GESTATION PERIOD AT TIME OF EXPOSURE WAS THE FIRST TRIMESTER.
     Route: 064
     Dates: start: 20040101, end: 20040101
  2. VENTOLIN HFA [Suspect]
     Indication: ILL-DEFINED DISORDER
     Dosage: GESTATION PERIOD AT TIME OF EXPOSURE WAS THE FIRST TRIMESTER.
     Route: 064
     Dates: start: 20040101, end: 20040101
  3. CETIRIZINE HCL [Suspect]
     Route: 064
  4. MONTELUKAST SODIUM [Concomitant]
     Dosage: GESTATION PERIOD AT TIME OF EXPOSURE WAS THE FIRST TRIMESTER.
     Route: 064
  5. PREDNISONE [Suspect]
     Indication: ILL-DEFINED DISORDER
     Dosage: GESTATION PERIOD AT TIME OF EXPOSURE WAS THE FIRST TRIMESTER.
     Route: 064
     Dates: start: 20040101, end: 20040101
  6. PNEUMOREL [Suspect]
     Indication: ILL-DEFINED DISORDER
     Dosage: GESTATION PERIOD AT TIME OF EXPOSURE WAS THE FIRST TRIMESTER.
     Route: 064
     Dates: start: 20040101, end: 20040101
  7. ACETYLCYSTEINE [Suspect]
     Indication: ILL-DEFINED DISORDER
     Dosage: GESTATION PERIOD AT TIME OF EXPOSURE WAS THE FIRST TRIMESTER.
     Route: 064
     Dates: start: 20040101, end: 20040101
  8. CETIRIZINE HCL [Suspect]
     Indication: ILL-DEFINED DISORDER
     Dosage: GESTATION PERIOD AT TIME OF EXPOSURE WAS THE FIRST TRIMESTER.
     Route: 064
     Dates: start: 20040101, end: 20040101

REACTIONS (3)
  - ARNOLD-CHIARI MALFORMATION [None]
  - MATERNAL EXPOSURE DURING PREGNANCY [None]
  - SPINA BIFIDA [None]
